FAERS Safety Report 7610055-9 (Version None)
Quarter: 2011Q3

REPORT INFORMATION
  Report Type: 
  Country: None (occurrence: None)
  Receive Date: 20110715
  Receipt Date: 20110708
  Transmission Date: 20111222
  Serious: Yes (Other)
  Sender: FDA-Public Use
  Company Number: US-BRISTOL-MYERS SQUIBB COMPANY-15822968

PATIENT
  Age: 58 Year
  Sex: Male

DRUGS (4)
  1. ALLOPURINOL [Concomitant]
     Dates: start: 20071001
  2. BELATACEPT [Suspect]
     Indication: RENAL TRANSPLANT
     Route: 042
     Dates: start: 20070319
  3. MYCOPHENOLATE MOFETIL [Suspect]
     Dates: start: 20070319
  4. PREDNISONE [Suspect]
     Dates: start: 20070322

REACTIONS (2)
  - SQUAMOUS CELL CARCINOMA OF SKIN [None]
  - BASAL CELL CARCINOMA [None]
